FAERS Safety Report 17692226 (Version 3)
Quarter: 2023Q1

REPORT INFORMATION
  Report Type: Report from Study
  Country: US (occurrence: US)
  Receive Date: 20200422
  Receipt Date: 20230118
  Transmission Date: 20230417
  Serious: Yes (Other)
  Sender: FDA-Public Use
  Company Number: US-PFIZER INC-2019281468

PATIENT
  Sex: Female

DRUGS (1)
  1. LYRICA [Suspect]
     Active Substance: PREGABALIN
     Indication: Product used for unknown indication
     Dosage: 50 MG, 1X/DAY (AT BEDTIME AS DIRECTED BY PHYSICIAN) REGIMEN DOSE UNIT: MILLIGRAM
     Route: 048

REACTIONS (4)
  - Drug dependence [Unknown]
  - Mental disorder [Unknown]
  - Illness [Unknown]
  - Product dose omission issue [Unknown]
